FAERS Safety Report 9886906 (Version 3)
Quarter: 2014Q2

REPORT INFORMATION
  Report Type: Report from Study
  Country: TR (occurrence: TR)
  Receive Date: 20140210
  Receipt Date: 20140609
  Transmission Date: 20141212
  Serious: Yes (Other)
  Sender: FDA-Public Use
  Company Number: TR-US-EMD SERONO, INC.-7267830

PATIENT
  Sex: Female
  Weight: 93 kg

DRUGS (7)
  1. REBIF [Suspect]
     Indication: MULTIPLE SCLEROSIS
     Dates: start: 200703
  2. CORASPIN [Concomitant]
     Indication: PLATELET AGGREGATION
  3. PAROL [Concomitant]
     Indication: PAIN
  4. PAROL [Concomitant]
     Indication: PYREXIA
  5. DOLOREX                            /00068902/ [Concomitant]
     Indication: PRODUCT USED FOR UNKNOWN INDICATION
  6. NOOTROPIL [Concomitant]
     Indication: PRODUCT USED FOR UNKNOWN INDICATION
  7. BELOC                              /00376902/ [Concomitant]
     Indication: PRODUCT USED FOR UNKNOWN INDICATION

REACTIONS (5)
  - Suicidal ideation [Recovering/Resolving]
  - Nephrolithiasis [Not Recovered/Not Resolved]
  - Nervousness [Recovering/Resolving]
  - Injection site erythema [Not Recovered/Not Resolved]
  - Injection site bruising [Not Recovered/Not Resolved]
